FAERS Safety Report 6174256-1 (Version None)
Quarter: 2009Q2

REPORT INFORMATION
  Report Type: 
  Country: None (occurrence: None)
  Receive Date: 20090430
  Receipt Date: 20080515
  Transmission Date: 20091009
  Serious: No
  Sender: FDA-Public Use
  Company Number: US-ASTRAZENECA-2008UW08184

PATIENT
  Age: 66 Year
  Sex: Male
  Weight: 84.8 kg

DRUGS (3)
  1. NEXIUM [Suspect]
     Indication: REFLUX OESOPHAGITIS
     Route: 048
  2. FLOMAX [Concomitant]
  3. CRESTOR [Concomitant]

REACTIONS (2)
  - FALL [None]
  - PAIN [None]
